FAERS Safety Report 24871400 (Version 1)
Quarter: 2025Q1

REPORT INFORMATION
  Report Type: Spontaneous
  Country: CN (occurrence: CN)
  Receive Date: 20250122
  Receipt Date: 20250122
  Transmission Date: 20250409
  Serious: Yes (Hospitalization, Other)
  Sender: SANOFI AVENTIS
  Company Number: CN-SA-2025SA017894

PATIENT
  Age: 66 Year
  Sex: Male

DRUGS (10)
  1. CLOPIDOGREL BISULFATE [Suspect]
     Active Substance: CLOPIDOGREL BISULFATE
     Indication: Coronary arterial stent insertion
     Dosage: 75 MG, QD
     Route: 048
     Dates: start: 20240301, end: 20250111
  2. ASPIRIN [Suspect]
     Active Substance: ASPIRIN
     Indication: Coronary arterial stent insertion
     Dosage: 100 MG, QD
     Route: 048
     Dates: start: 20240301, end: 20250111
  3. HERBALS [Suspect]
     Active Substance: HERBALS
     Indication: Coronary artery disease
     Dosage: 30 ML, QD
     Route: 041
     Dates: start: 20250101, end: 20250111
  4. HERBALS [Suspect]
     Active Substance: HERBALS
     Indication: Lumbar spinal stenosis
     Dosage: 3 G, BID
     Route: 048
     Dates: start: 20241227, end: 20250111
  5. HERBALS [Suspect]
     Active Substance: HERBALS
     Indication: Lumbar spinal stenosis
     Dosage: 4 DF, TID
     Route: 048
     Dates: start: 20241227, end: 20250111
  6. EZETIMIBE [Concomitant]
     Active Substance: EZETIMIBE
     Indication: Hyperlipidaemia
     Dosage: 10 MG, QD
     Route: 048
     Dates: start: 20240301, end: 20250111
  7. ISOSORBIDE MONONITRATE [Concomitant]
     Active Substance: ISOSORBIDE MONONITRATE
     Indication: Coronary artery disease
     Dosage: 60 MG, QD
     Route: 048
     Dates: start: 20240301, end: 20250111
  8. METFORMIN HYDROCHLORIDE [Concomitant]
     Active Substance: METFORMIN HYDROCHLORIDE
     Indication: Type 2 diabetes mellitus
     Dosage: 0.25 G, TID
     Route: 048
     Dates: start: 20240301, end: 20250111
  9. ACARBOSE [Concomitant]
     Active Substance: ACARBOSE
     Indication: Type 2 diabetes mellitus
     Dosage: 50 MG, TID
     Route: 048
     Dates: start: 20240301, end: 20250111
  10. COBAMAMIDE [Concomitant]
     Active Substance: COBAMAMIDE
     Indication: Lumbar spinal stenosis
     Dosage: 1.5 MG, QD
     Route: 030
     Dates: start: 20241230, end: 20250114

REACTIONS (6)
  - Upper gastrointestinal haemorrhage [Recovering/Resolving]
  - Melaena [Recovering/Resolving]
  - Haematemesis [Recovering/Resolving]
  - Thirst [Recovering/Resolving]
  - Chest discomfort [Recovering/Resolving]
  - Asphyxia [Recovering/Resolving]

NARRATIVE: CASE EVENT DATE: 20250110
